FAERS Safety Report 6025129-6 (Version None)
Quarter: 2008Q4

REPORT INFORMATION
  Report Type: 
  Country: None (occurrence: None)
  Receive Date: 20081231
  Receipt Date: 20081223
  Transmission Date: 20090506
  Serious: Yes (Hospitalization, Other)
  Sender: FDA-Public Use
  Company Number: US-AMGEN-QUU325462

PATIENT
  Sex: Female

DRUGS (2)
  1. ENBREL [Suspect]
     Indication: RHEUMATOID ARTHRITIS
  2. ENBREL [Suspect]
     Indication: PSORIASIS

REACTIONS (6)
  - AMNESIA [None]
  - COMPUTERISED TOMOGRAM ABNORMAL [None]
  - COUGH [None]
  - DIAGNOSTIC PROCEDURE [None]
  - TUBERCULOSIS TEST [None]
  - VOMITING [None]
